FAERS Safety Report 9596076 (Version 2)
Quarter: 2013Q4

REPORT INFORMATION
  Report Type: Spontaneous
  Country: JP (occurrence: JP)
  Receive Date: 20131004
  Receipt Date: 20131022
  Transmission Date: 20140711
  Serious: Yes (Hospitalization)
  Sender: FDA-Public Use
  Company Number: JP-EISAI INC-E2090-02895-SPO-JP

PATIENT
  Age: 63 Year
  Sex: Female

DRUGS (4)
  1. EXCEGRAN [Suspect]
     Indication: EPILEPSY
     Route: 048
     Dates: start: 20130807, end: 20130905
  2. DEPAKENE-R [Suspect]
     Indication: EPILEPSY
     Dosage: 100 MG
     Route: 048
     Dates: start: 20130807, end: 20130905
  3. NU-LOTAN [Concomitant]
     Indication: HYPERTENSION
     Dosage: 25 MG/DAY
     Route: 048
  4. XARELTO [Concomitant]
     Indication: ATRIAL FIBRILLATION
     Dosage: 10 MG/DAY
     Route: 048
     Dates: start: 20130820, end: 20130905

REACTIONS (1)
  - Drug reaction with eosinophilia and systemic symptoms [Recovered/Resolved]
